FAERS Safety Report 7809510-8 (Version None)
Quarter: 2011Q4

REPORT INFORMATION
  Report Type: 
  Country: None (occurrence: None)
  Receive Date: 20111012
  Receipt Date: 20110930
  Transmission Date: 20120403
  Serious: Yes (Other)
  Sender: FDA-Public Use
  Company Number: PHEH2011US05685

PATIENT
  Age: 50 Year
  Sex: Female

DRUGS (2)
  1. IRON [Concomitant]
     Dosage: UNK UKN, UNK
  2. METHYLPHENIDATE [Suspect]
     Dosage: 55 MG, DAY (21/2 PILLS IN THE MORNING, 2 AT LUNCH AND 1 IN THE EVENING)

REACTIONS (1)
  - PHARYNGEAL OEDEMA [None]
